FAERS Safety Report 6139825-3 (Version None)
Quarter: 2009Q2

REPORT INFORMATION
  Report Type: 
  Country: None (occurrence: None)
  Receive Date: 20090401
  Receipt Date: 20090330
  Transmission Date: 20091009
  Serious: Yes (Hospitalization)
  Sender: FDA-Public Use
  Company Number: B0567954A

PATIENT
  Age: 61 Year
  Sex: Female

DRUGS (1)
  1. DIGOXIN [Suspect]
     Dosage: .5MG PER DAY

REACTIONS (14)
  - ATRIOVENTRICULAR BLOCK COMPLETE [None]
  - BREATH SOUNDS ABNORMAL [None]
  - DEHYDRATION [None]
  - DISORIENTATION [None]
  - DRUG LEVEL INCREASED [None]
  - HOSTILITY [None]
  - LOSS OF CONSCIOUSNESS [None]
  - NAUSEA [None]
  - PYREXIA [None]
  - RALES [None]
  - SKIN TURGOR DECREASED [None]
  - THERAPEUTIC AGENT TOXICITY [None]
  - TONGUE DRY [None]
  - VOMITING [None]
